FAERS Safety Report 13570940 (Version 1)
Quarter: 2017Q2

REPORT INFORMATION
  Report Type: Spontaneous
  Country: US (occurrence: US)
  Receive Date: 20170523
  Receipt Date: 20170523
  Transmission Date: 20170830
  Serious: No
  Sender: FDA-Public Use
  Company Number: US-TEVA-696716USA

PATIENT
  Age: 41 Year
  Sex: Female
  Weight: 59.02 kg

DRUGS (4)
  1. KELNOR 1/35 [Suspect]
     Active Substance: ETHINYL ESTRADIOL\ETHYNODIOL DIACETATE
     Indication: HORMONE LEVEL ABNORMAL
     Dosage: 1 MG/35 MCG
  2. ACYCLOVIR. [Concomitant]
     Active Substance: ACYCLOVIR
  3. ALBUTEROL. [Concomitant]
     Active Substance: ALBUTEROL
  4. VALACYCLOVIR [Concomitant]
     Active Substance: VALACYCLOVIR HYDROCHLORIDE

REACTIONS (8)
  - Pharyngeal hypoaesthesia [Not Recovered/Not Resolved]
  - Anxiety [Unknown]
  - Hypoaesthesia oral [Not Recovered/Not Resolved]
  - Heart rate increased [Recovered/Resolved]
  - Hypoaesthesia [Not Recovered/Not Resolved]
  - Paraesthesia [Not Recovered/Not Resolved]
  - Tachycardia [Unknown]
  - Paraesthesia oral [Recovered/Resolved]

NARRATIVE: CASE EVENT DATE: 20161121
